FAERS Safety Report 13662149 (Version 2)
Quarter: 2017Q3

REPORT INFORMATION
  Report Type: Spontaneous
  Country: BE (occurrence: BE)
  Receive Date: 20170616
  Receipt Date: 20170801
  Transmission Date: 20171127
  Serious: Yes (Congenital Anomaly, Other)
  Sender: FDA-Public Use
  Company Number: US-IMPAX LABORATORIES, INC-2017-IPXL-01754

PATIENT
  Sex: Female

DRUGS (1)
  1. DIVALPROEX SODIUM ER [Suspect]
     Active Substance: DIVALPROEX SODIUM
     Indication: FOETAL EXPOSURE DURING PREGNANCY
     Dosage: UNK
     Route: 064

REACTIONS (10)
  - Autism spectrum disorder [Unknown]
  - Necrotising colitis [Unknown]
  - Foetal anticonvulsant syndrome [Unknown]
  - Device related sepsis [Unknown]
  - Abnormal behaviour [Unknown]
  - Cognitive disorder [Unknown]
  - Foetal exposure during pregnancy [Unknown]
  - Disturbance in social behaviour [Unknown]
  - Emotional disorder [Unknown]
  - Premature baby [Unknown]
